FAERS Safety Report 10257558 (Version 1)
Quarter: 2014Q2

REPORT INFORMATION
  Report Type: Report from Study
  Country: CN (occurrence: None)
  Receive Date: 20140620
  Receipt Date: 20140620
  Transmission Date: 20141212
  Serious: Yes (Death, Hospitalization)
  Sender: FDA-Public Use
  Company Number: VAL_03165_2014

PATIENT
  Age: 54 Year
  Sex: Male
  Weight: 85 kg

DRUGS (4)
  1. METOPROLOL (METOPROLOL - METOPROLOL TARTRATE) [Suspect]
     Indication: CARDIAC FAILURE
     Route: 048
     Dates: start: 201401, end: 20140513
  2. UNKNOWN [Suspect]
     Indication: CARDIAC FAILURE
     Dosage: DF ORAL
     Route: 048
     Dates: start: 20120925, end: 20140513
  3. FUROSEMIDE [Concomitant]
  4. SPIRONOLACTONE [Concomitant]

REACTIONS (3)
  - Cardiac failure [None]
  - Urinary nitrogen increased [None]
  - Blood creatinine increased [None]
